FAERS Safety Report 7753097-5 (Version None)
Quarter: 2011Q3

REPORT INFORMATION
  Report Type: 
  Country: None (occurrence: None)
  Receive Date: 20110913
  Receipt Date: 20110830
  Transmission Date: 20111222
  Serious: Yes (Other)
  Sender: FDA-Public Use
  Company Number: TCI2011A04504

PATIENT
  Age: 73 Year
  Sex: Male

DRUGS (2)
  1. ACTOS [Suspect]
     Indication: PRODUCT USED FOR UNKNOWN INDICATION
     Dosage: 30 MG (30 MG, 1 IN 1 D), PER ORAL
     Route: 048
  2. GLYBURIDE [Concomitant]

REACTIONS (1)
  - BLADDER CANCER [None]
